FAERS Safety Report 23995266 (Version 1)
Quarter: 2024Q2

REPORT INFORMATION
  Report Type: Spontaneous
  Country: CN (occurrence: CN)
  Receive Date: 20240620
  Receipt Date: 20240620
  Transmission Date: 20240716
  Serious: Yes (Other)
  Sender: FDA-Public Use
  Company Number: CN-PFIZER INC-PV202400078965

PATIENT
  Age: 10 Year
  Sex: Female
  Weight: 26 kg

DRUGS (2)
  1. CYTARABINE [Suspect]
     Active Substance: CYTARABINE
     Indication: Chemotherapy
     Dosage: 194 MG, 1X/DAY
     Route: 041
     Dates: start: 20240515, end: 20240522
  2. SODIUM CHLORIDE [Concomitant]
     Active Substance: SODIUM CHLORIDE
     Indication: Vehicle solution use
     Dosage: 500 ML, 1X/DAY
     Route: 041
     Dates: start: 20240515, end: 20240522

REACTIONS (7)
  - Flushing [Recovering/Resolving]
  - Rash vesicular [Recovering/Resolving]
  - Tenderness [Recovering/Resolving]
  - Skin temperature increased [Recovering/Resolving]
  - Dermatitis allergic [Recovering/Resolving]
  - Erythema [Recovering/Resolving]
  - Skin wound [Recovering/Resolving]

NARRATIVE: CASE EVENT DATE: 20240526
